FAERS Safety Report 6792308-X (Version None)
Quarter: 2010Q2

REPORT INFORMATION
  Report Type: 
  Country: None (occurrence: None)
  Receive Date: 20100624
  Receipt Date: 20080724
  Transmission Date: 20101027
  Serious: No
  Sender: FDA-Public Use
  Company Number: US-PFIZER INC-2008062603

PATIENT
  Sex: Male
  Weight: 75 kg

DRUGS (1)
  1. GEODON [Suspect]
     Indication: SCHIZOPHRENIA
     Dates: start: 20080723

REACTIONS (3)
  - FEELING ABNORMAL [None]
  - RESTLESSNESS [None]
  - SOMNOLENCE [None]
